FAERS Safety Report 13366449 (Version 1)
Quarter: 2017Q1

REPORT INFORMATION
  Report Type: Spontaneous
  Country: BR (occurrence: BR)
  Receive Date: 20170323
  Receipt Date: 20170323
  Transmission Date: 20170429
  Serious: Yes (Disabling, Other)
  Sender: FDA-Public Use
  Company Number: BR-IMPAX LABORATORIES, INC-2017-IPXL-00661

PATIENT
  Age: 71 Year
  Sex: Male

DRUGS (1)
  1. PRIMIDONE. [Suspect]
     Active Substance: PRIMIDONE
     Indication: ESSENTIAL TREMOR
     Dosage: 100 MG, QD
     Route: 065

REACTIONS (4)
  - Peyronie^s disease [Unknown]
  - Dupuytren^s contracture [Unknown]
  - Plantar fascial fibromatosis [Unknown]
  - Off label use [Unknown]
